FAERS Safety Report 8858795 (Version 2)
Quarter: 2012Q4

REPORT INFORMATION
  Report Type: 
  Country: US (occurrence: US)
  Receive Date: 20121024
  Receipt Date: 20121026
  Transmission Date: 20130627
  Serious: Yes (Life-Threatening, Hospitalization)
  Sender: FDA-Public Use
  Company Number: US-JNJFOC-20121011240

PATIENT
  Age: 86 Year
  Sex: Female
  Weight: 98 kg

DRUGS (12)
  1. XARELTO [Suspect]
     Indication: CEREBROVASCULAR ACCIDENT PROPHYLAXIS
     Route: 048
     Dates: start: 20121003
  2. XARELTO [Suspect]
     Indication: ATRIAL FIBRILLATION
     Route: 048
     Dates: start: 20121003
  3. LACTOBACILLUS [Concomitant]
     Route: 048
  4. ACETAMINOPHEN [Concomitant]
     Indication: PAIN
     Route: 048
  5. XOPENEX [Concomitant]
     Indication: DYSPNOEA
     Route: 048
  6. SALMETEROL [Concomitant]
  7. NITROGLYCERIN [Concomitant]
     Indication: CHEST PAIN
     Route: 060
  8. FUROSEMIDE [Concomitant]
     Route: 048
  9. FUROSEMIDE [Concomitant]
     Route: 048
  10. POTASSIUM [Concomitant]
     Route: 048
  11. METOPROLOL [Concomitant]
     Route: 048
  12. MECLIZINE [Concomitant]
     Indication: DIZZINESS

REACTIONS (2)
  - Gastrointestinal haemorrhage [Recovering/Resolving]
  - Incorrect dose administered [Unknown]
